FAERS Safety Report 16046154 (Version 1)
Quarter: 2019Q1

REPORT INFORMATION
  Report Type: Spontaneous
  Country: FR (occurrence: FR)
  Receive Date: 20190307
  Receipt Date: 20190307
  Transmission Date: 20190418
  Serious: Yes (Death)
  Sender: FDA-Public Use
  Company Number: FR-ACCORD-111531

PATIENT
  Age: 60 Year
  Sex: Male
  Weight: 59 kg

DRUGS (2)
  1. FLUOROURACIL ACCORD [Suspect]
     Active Substance: FLUOROURACIL
     Indication: ADENOCARCINOMA GASTRIC
     Dosage: (IN 56 MIN ON 20/08 INSTEAD OF 45H)
     Route: 042
     Dates: start: 20180524, end: 20180820
  2. OXALIPLATINE ACCORD [Suspect]
     Active Substance: OXALIPLATIN
     Indication: ADENOCARCINOMA GASTRIC
     Route: 042
     Dates: start: 20180524, end: 20180820

REACTIONS (3)
  - Wrong rate [Fatal]
  - Agranulocytosis [Fatal]
  - Septic shock [Fatal]

NARRATIVE: CASE EVENT DATE: 20180820
